FAERS Safety Report 9299004 (Version 1)
Quarter: 2013Q2

REPORT INFORMATION
  Report Type: Spontaneous
  Country: CH (occurrence: CH)
  Receive Date: 20130520
  Receipt Date: 20130520
  Transmission Date: 20140414
  Serious: Yes (Other)
  Sender: FDA-Public Use
  Company Number: CH-TEVA-404068ISR

PATIENT
  Age: 12 Year
  Sex: Male
  Weight: 29 kg

DRUGS (9)
  1. CO-AMOXI-MEPHA [Suspect]
     Indication: OSTEOMYELITIS ACUTE
     Dosage: 100 MG/KG AMOXICILLIN (1 G AMOXICILLIN/ 100 MG CLAVULANIC ACID)
     Route: 041
     Dates: start: 20130210, end: 20130214
  2. CO-AMOXI-MEPHA [Suspect]
     Dosage: 150 MG/KG AMOXICILLIN (1.3 G AMOXICILLIN/ 130 MG CLAVULANIC ACID)
     Route: 041
     Dates: start: 20130215, end: 20130228
  3. DAFALGAN [Suspect]
     Indication: PAIN
     Dosage: RESERVE MEDICATION, MAX 3 X/DAY
     Route: 048
     Dates: start: 20130210, end: 20130306
  4. ALGIFOR [Suspect]
     Indication: PAIN
     Dosage: RESERVE MEDICATION, MAX 3 X/DAY
     Route: 048
     Dates: start: 20130210, end: 20130306
  5. GENTAMYCIN [Concomitant]
     Indication: OSTEOMYELITIS ACUTE
     Dosage: 80 MILLIGRAM DAILY;
     Route: 041
     Dates: start: 20130215, end: 20130221
  6. ROCEPHIN 2 G AMPOULES [Concomitant]
     Indication: OSTEOMYELITIS ACUTE
     Dosage: 2.6 GRAM DAILY;
     Route: 041
     Dates: start: 20130228
  7. ROCEPHIN 2 G AMPOULES [Concomitant]
     Dosage: 2 GRAM DAILY;
     Route: 041
     Dates: start: 20130303
  8. AMIKIN 500 MG VIALS [Concomitant]
     Indication: OSTEOMYELITIS ACUTE
     Dosage: 530 MILLIGRAM DAILY;
     Route: 041
     Dates: start: 20130228, end: 20130301
  9. AMIKIN 500 MG VIALS [Concomitant]
     Dosage: 500 MILLIGRAM DAILY;
     Route: 041
     Dates: start: 20130302

REACTIONS (4)
  - Leukopenia [Recovered/Resolved]
  - Neutropenia [Recovered/Resolved]
  - Agranulocytosis [Recovered/Resolved]
  - Pyrexia [Recovered/Resolved]
